FAERS Safety Report 10153320 (Version 2)
Quarter: 2014Q2

REPORT INFORMATION
  Report Type: Spontaneous
  Country: US (occurrence: US)
  Receive Date: 20140505
  Receipt Date: 20140613
  Transmission Date: 20141212
  Serious: Yes (Other)
  Sender: FDA-Public Use
  Company Number: US-TEVA-479239USA

PATIENT
  Sex: Female

DRUGS (1)
  1. PROAIR HFA [Suspect]
     Dates: start: 2012

REACTIONS (4)
  - Throat tightness [Unknown]
  - Stomatitis [Unknown]
  - Pharyngeal inflammation [Unknown]
  - Product contamination [Unknown]
